FAERS Safety Report 4402864-4 (Version None)
Quarter: 2004Q3

REPORT INFORMATION
  Report Type: 
  Country: None (occurrence: None)
  Receive Date: 20040721
  Receipt Date: 20040715
  Transmission Date: 20050211
  Serious: Yes (Hospitalization)
  Sender: FDA-Public Use
  Company Number: 200416989GDDC

PATIENT
  Age: 49 Year
  Sex: Male

DRUGS (6)
  1. METRONIDAZOLE [Suspect]
     Indication: LIVER ABSCESS
     Route: 048
     Dates: start: 20040626
  2. AUGMENTIN '250' [Suspect]
     Indication: LIVER ABSCESS
     Route: 048
     Dates: start: 20040626
  3. EFFEXOR [Concomitant]
     Route: 048
  4. GLICLAZIDE [Concomitant]
     Indication: DIABETES MELLITUS
     Route: 048
  5. OXCARBAZEPINE [Concomitant]
     Indication: EPILEPSY
     Route: 048
  6. MELATONIN [Concomitant]
     Indication: SLEEP DISORDER
     Route: 048

REACTIONS (1)
  - CONVULSION [None]
